FAERS Safety Report 8886727 (Version 1)
Quarter: 2012Q4

REPORT INFORMATION
  Report Type: 
  Country: BR (occurrence: BR)
  Receive Date: 20121105
  Receipt Date: 20121105
  Transmission Date: 20130627
  Serious: Yes (Other)
  Sender: FDA-Public Use
  Company Number: BR-PFIZER INC-2012270884

PATIENT
  Sex: Female

DRUGS (1)
  1. DEPO-PROVERA [Suspect]
     Indication: CONTRACEPTION
     Dosage: 150 mg, UNK
     Route: 030

REACTIONS (5)
  - Drug ineffective [Unknown]
  - Unintended pregnancy [Unknown]
  - Syncope [Unknown]
  - Feeling abnormal [Unknown]
  - Tooth injury [Unknown]
